FAERS Safety Report 6304065-1 (Version None)
Quarter: 2009Q3

REPORT INFORMATION
  Report Type: 
  Country: None (occurrence: None)
  Receive Date: 20090810
  Receipt Date: 20090729
  Transmission Date: 20100115
  Serious: Yes (Other)
  Sender: FDA-Public Use
  Company Number: JP-PFIZER INC-2009243796

PATIENT
  Age: 81 Year

DRUGS (2)
  1. ZYVOX [Suspect]
     Dosage: 1200 MG/DAY
     Route: 042
     Dates: start: 20090714, end: 20090720
  2. VANCOMYCIN HYDROCHLORIDE [Concomitant]

REACTIONS (1)
  - APLASTIC ANAEMIA [None]
